FAERS Safety Report 23598587 (Version 1)
Quarter: 2024Q1

REPORT INFORMATION
  Report Type: Spontaneous
  Country: US (occurrence: US)
  Receive Date: 20240306
  Receipt Date: 20240306
  Transmission Date: 20240409
  Serious: Yes (Life-Threatening, Hospitalization, Other)
  Sender: FDA-Public Use
  Company Number: US-MLMSERVICE-20240216-4837240-1

PATIENT
  Age: 77 Year
  Sex: Female

DRUGS (1)
  1. PREDNISONE [Suspect]
     Active Substance: PREDNISONE
     Indication: Polymyalgia rheumatica
     Dosage: LOW-DOSE
     Route: 065

REACTIONS (6)
  - Scedosporium infection [Recovering/Resolving]
  - Osteomyelitis [Recovering/Resolving]
  - Arthritis bacterial [Recovering/Resolving]
  - Wound infection fungal [Recovering/Resolving]
  - Cellulitis [Recovering/Resolving]
  - Osteomyelitis fungal [Recovering/Resolving]
